FAERS Safety Report 13989647 (Version 1)
Quarter: 2017Q3

REPORT INFORMATION
  Report Type: Spontaneous
  Country: DE (occurrence: DE)
  Receive Date: 20170920
  Receipt Date: 20170920
  Transmission Date: 20171128
  Serious: Yes (Other)
  Sender: FDA-Public Use
  Company Number: DE-TEVA-805513GER

PATIENT
  Age: 61 Year
  Sex: Male

DRUGS (1)
  1. IPRATROPIUM TEVA 250 MIKROGRAMM/1 ML LOESUNG FUER EINEN VERNEBLER [Suspect]
     Active Substance: IPRATROPIUM
     Indication: CHRONIC OBSTRUCTIVE PULMONARY DISEASE
     Dates: start: 20170904

REACTIONS (5)
  - Eye pain [Recovering/Resolving]
  - Cough [Unknown]
  - Ocular hypertension [Unknown]
  - Headache [Unknown]
  - Product substitution issue [Unknown]

NARRATIVE: CASE EVENT DATE: 20170904
